FAERS Safety Report 7862590-6 (Version None)
Quarter: 2011Q4

REPORT INFORMATION
  Report Type: 
  Country: None (occurrence: None)
  Receive Date: 20111027
  Receipt Date: 20101109
  Transmission Date: 20120403
  Serious: No
  Sender: FDA-Public Use
  Company Number: US-AMGEN-USASP2010004116

PATIENT
  Age: 57 Year
  Sex: Female

DRUGS (13)
  1. ENBREL [Suspect]
     Indication: PRODUCT USED FOR UNKNOWN INDICATION
     Dosage: 50 MG, QWK
     Route: 058
     Dates: start: 20090201
  2. NEURONTIN [Concomitant]
     Dosage: 600 MG, UNK
  3. TRAZODONE HYDROCHLORIDE [Concomitant]
     Dosage: 100 MG, UNK
  4. IMURAN [Concomitant]
     Dosage: 50 MG, UNK
  5. GLUCOSAMINE + CHONDROITIN [Concomitant]
  6. ENBREL [Suspect]
  7. PREDNISONE [Concomitant]
     Dosage: 5 MG, UNK
  8. PROTONIX [Concomitant]
     Dosage: 40 MG, UNK
  9. MULTIVITAMIN                       /00097801/ [Concomitant]
  10. THYROID TAB [Concomitant]
     Dosage: 30 MG, UNK
  11. LEVAQUIN [Concomitant]
     Dosage: 250 MG, UNK
  12. LODINE [Concomitant]
     Dosage: 400 MG, UNK
  13. GLUCOPHAGE [Concomitant]
     Dosage: 500 MG, UNK

REACTIONS (3)
  - NASOPHARYNGITIS [None]
  - OROPHARYNGEAL PAIN [None]
  - PYREXIA [None]
